FAERS Safety Report 25517500 (Version 1)
Quarter: 2025Q3

REPORT INFORMATION
  Report Type: Other
  Country: RU (occurrence: RU)
  Receive Date: 20250704
  Receipt Date: 20250704
  Transmission Date: 20251021
  Serious: Yes (Hospitalization, Other)
  Sender: ANI
  Company Number: RU-ANIPHARMA-023092

PATIENT
  Age: 11 Year
  Sex: Male

DRUGS (9)
  1. FLUCONAZOLE [Suspect]
     Active Substance: FLUCONAZOLE
     Indication: Antifungal treatment
  2. ELEXACAFTOR\IVACAFTOR\TEZACAFTOR [Concomitant]
     Active Substance: ELEXACAFTOR\IVACAFTOR\TEZACAFTOR
     Indication: Cystic fibrosis
     Route: 048
     Dates: start: 202303
  3. IVACAFTOR [Concomitant]
     Active Substance: IVACAFTOR
     Indication: Cystic fibrosis
     Route: 048
     Dates: start: 202303
  4. PYRANTEL [Concomitant]
     Active Substance: PYRANTEL
     Indication: Drug therapy
  5. DORNASE ALFA [Concomitant]
     Active Substance: DORNASE ALFA
     Indication: Product used for unknown indication
  6. MANNITOL [Concomitant]
     Active Substance: MANNITOL
     Indication: Mucolytic treatment
  7. MANNITOL [Concomitant]
     Active Substance: MANNITOL
     Indication: Mucolytic treatment
  8. ELEXACAFTOR\IVACAFTOR\TEZACAFTOR [Concomitant]
     Active Substance: ELEXACAFTOR\IVACAFTOR\TEZACAFTOR
     Indication: Gilbert^s syndrome
     Route: 048
     Dates: start: 202303
  9. IVACAFTOR [Concomitant]
     Active Substance: IVACAFTOR
     Indication: Gilbert^s syndrome
     Route: 048
     Dates: start: 202303

REACTIONS (3)
  - Intentional product misuse [Unknown]
  - Drug interaction [Unknown]
  - Hepatitis [Recovering/Resolving]
